FAERS Safety Report 25710596 (Version 1)
Quarter: 2025Q3

REPORT INFORMATION
  Report Type: Spontaneous
  Country: US (occurrence: None)
  Receive Date: 20250820
  Receipt Date: 20250820
  Transmission Date: 20251021
  Serious: Yes (unspecified)
  Sender: FDA-CTU
  Company Number: None

PATIENT
  Age: 73 Year
  Sex: Female
  Weight: 41.4 kg

DRUGS (8)
  1. BACTRIM [Suspect]
     Active Substance: SULFAMETHOXAZOLE\TRIMETHOPRIM
     Indication: Urinary tract infection
     Dosage: OTHER QUANTITY : 1 TABLET(S);?FREQUENCY : TWICE A DAY;?
     Route: 048
     Dates: start: 20250731, end: 20250804
  2. Dorzolamide2% eye drop [Concomitant]
  3. POTASSIUM CHLORIDE [Concomitant]
     Active Substance: POTASSIUM CHLORIDE
  4. LATANOPROST [Concomitant]
     Active Substance: LATANOPROST
  5. LEFLUNOMIDE [Concomitant]
     Active Substance: LEFLUNOMIDE
  6. Calcium with D3 [Concomitant]
  7. PreserVision Areds 2 eye vitamin [Concomitant]
  8. Ensure nutrition drink [Concomitant]

REACTIONS (1)
  - Hallucination [None]

NARRATIVE: CASE EVENT DATE: 20250803
